FAERS Safety Report 9524612 (Version 2)
Quarter: 2013Q3

REPORT INFORMATION
  Report Type: Spontaneous
  Country: ES (occurrence: ES)
  Receive Date: 20130916
  Receipt Date: 20130916
  Transmission Date: 20140515
  Serious: Yes (Other)
  Sender: FDA-Public Use
  Company Number: PHHY2013ES091473

PATIENT
  Age: 96 Year
  Sex: Female

DRUGS (2)
  1. DIOVAN [Suspect]
     Indication: HYPERTENSION
     Dosage: 160 MG, DAILY
     Route: 048
  2. PARACETAMOL [Concomitant]

REACTIONS (4)
  - Swelling face [Recovering/Resolving]
  - Lip swelling [Recovered/Resolved]
  - Gingival swelling [Recovered/Resolved]
  - Procedural complication [Unknown]
